FAERS Safety Report 9894137 (Version 1)
Quarter: 2014Q1

REPORT INFORMATION
  Report Type: Spontaneous
  Country: US (occurrence: US)
  Receive Date: 20140213
  Receipt Date: 20140213
  Transmission Date: 20141002
  Serious: No
  Sender: FDA-Public Use
  Company Number: US-PFIZER INC-2014041187

PATIENT
  Age: 38 Year
  Sex: Female
  Weight: 104.3 kg

DRUGS (2)
  1. NEURONTIN [Suspect]
     Indication: SPINAL CORD NEOPLASM
     Dosage: 100 MG, 3X/DAY
     Route: 048
     Dates: start: 2001, end: 2012
  2. PAXIL [Concomitant]
     Dosage: UNK
     Dates: start: 2001, end: 2012

REACTIONS (5)
  - Off label use [Unknown]
  - Faecal incontinence [Unknown]
  - Faeces soft [Unknown]
  - Gastrointestinal disorder [Unknown]
  - Abnormal faeces [Unknown]
